FAERS Safety Report 5568028-6 (Version None)
Quarter: 2007Q4

REPORT INFORMATION
  Report Type: 
  Country: None (occurrence: None)
  Receive Date: 20071130
  Receipt Date: 20070905
  Transmission Date: 20080405
  Serious: No
  Sender: FDA-Public Use
  Company Number: US200709000990

PATIENT
  Age: 59 Year
  Sex: Female
  Weight: 115.6 kg

DRUGS (11)
  1. BYETTA [Suspect]
     Dosage: 5 U G, 2/D, SUBCUTANEOUS, 10 UG, 2/D, SUBCUTANEOUS, 10 UG, 2/D, SUBCUTANEOUS
     Route: 058
     Dates: start: 20070601, end: 20070801
  2. BYETTA [Suspect]
     Dosage: 5 U G, 2/D, SUBCUTANEOUS, 10 UG, 2/D, SUBCUTANEOUS, 10 UG, 2/D, SUBCUTANEOUS
     Route: 058
     Dates: start: 20070801
  3. BYETTA [Suspect]
     Dosage: 5 U G, 2/D, SUBCUTANEOUS, 10 UG, 2/D, SUBCUTANEOUS, 10 UG, 2/D, SUBCUTANEOUS
     Route: 058
     Dates: start: 20070801
  4. EXENATIDE 5MCG PEN, DISPOSABLE DEVICE (EXENATIDE PEN (5MCG)) PEN,DISPO [Concomitant]
  5. EXENATIDE 10MCG PEN, DISPOSABLE DEVICE (EXENATIDE PEN (10MCG)) PEN,DIS [Concomitant]
  6. LUNESTA [Concomitant]
  7. AMLODIPINE BESYLATE [Concomitant]
  8. SINGULAIR [Concomitant]
  9. PULMICORT [Concomitant]
  10. FLONASE [Concomitant]
  11. HYZAAR [Concomitant]

REACTIONS (5)
  - CHRONIC FATIGUE SYNDROME [None]
  - DYSPEPSIA [None]
  - ENERGY INCREASED [None]
  - FIBROMYALGIA [None]
  - WEIGHT DECREASED [None]
